FAERS Safety Report 13358024 (Version 2)
Quarter: 2017Q2

REPORT INFORMATION
  Report Type: Spontaneous
  Country: US (occurrence: US)
  Receive Date: 20170322
  Receipt Date: 20170420
  Transmission Date: 20170830
  Serious: No
  Sender: FDA-Public Use
  Company Number: US-PFIZER INC-2017121249

PATIENT
  Age: 70 Year
  Sex: Female
  Weight: 86.17 kg

DRUGS (23)
  1. RESTASIS [Concomitant]
     Active Substance: CYCLOSPORINE
     Dosage: UNK
  2. XELJANZ XR [Suspect]
     Active Substance: TOFACITINIB CITRATE
     Indication: RHEUMATOID ARTHRITIS
     Dosage: 11 MG, DAILY
     Route: 048
     Dates: start: 201505, end: 20170313
  3. ADVIL [Concomitant]
     Active Substance: IBUPROFEN
     Dosage: UNK
  4. OTREXUP [Concomitant]
     Active Substance: METHOTREXATE
     Dosage: UNK
  5. PREDNISONE. [Concomitant]
     Active Substance: PREDNISONE
     Dosage: UNK
  6. VERAPAMIL [Concomitant]
     Active Substance: VERAPAMIL HYDROCHLORIDE
     Indication: HYPERTENSION
     Dosage: UNK
  7. VERAPAMIL HCL [Concomitant]
     Active Substance: VERAPAMIL HYDROCHLORIDE
     Dosage: UNK
  8. CALCIUM + VITAMIN D [Concomitant]
     Active Substance: CALCIUM\VITAMIN D
     Dosage: UNK
  9. ASPIRIN (E.C.) [Concomitant]
     Active Substance: ASPIRIN
     Dosage: 81 MG, UNK
  10. ASPIRIN. [Concomitant]
     Active Substance: ASPIRIN
     Dosage: UNK
  11. PRAVASTATIN. [Concomitant]
     Active Substance: PRAVASTATIN
     Dosage: UNK
  12. GLIPIZIDE. [Concomitant]
     Active Substance: GLIPIZIDE
     Dosage: UNK
  13. LASIX [Concomitant]
     Active Substance: FUROSEMIDE
     Dosage: UNK
  14. FUROSEMIDE. [Concomitant]
     Active Substance: FUROSEMIDE
     Dosage: UNK
  15. FOLIC ACID. [Concomitant]
     Active Substance: FOLIC ACID
     Dosage: UNK
  16. VALSARTAN. [Concomitant]
     Active Substance: VALSARTAN
     Dosage: UNK
  17. GLIPIZIDE XL [Concomitant]
     Active Substance: GLIPIZIDE
     Dosage: UNK
  18. IRON [Concomitant]
     Active Substance: IRON
     Dosage: UNK
  19. MVI [Concomitant]
     Active Substance: VITAMINS
     Dosage: UNK
  20. XELJANZ XR [Suspect]
     Active Substance: TOFACITINIB CITRATE
     Dosage: 11 MG, 1X/DAY (STOP DATE: 2-3 WKS AGO)
     Route: 048
     Dates: start: 201505
  21. ALLEGRA [Concomitant]
     Active Substance: FEXOFENADINE HYDROCHLORIDE
     Dosage: UNK
  22. CALCIUM [Concomitant]
     Active Substance: CALCIUM
     Dosage: UNK
  23. METFORMIN [Concomitant]
     Active Substance: METFORMIN HYDROCHLORIDE
     Dosage: UNK

REACTIONS (3)
  - Condition aggravated [Unknown]
  - Urinary tract infection [Unknown]
  - Disease recurrence [Unknown]
